FAERS Safety Report 21136238 (Version 1)
Quarter: 2022Q3

REPORT INFORMATION
  Report Type: Spontaneous
  Country: US (occurrence: US)
  Receive Date: 20220727
  Receipt Date: 20220727
  Transmission Date: 20221027
  Serious: Yes (Other)
  Sender: FDA-Public Use
  Company Number: US-BION-010861

PATIENT

DRUGS (1)
  1. IBUPROFEN MINIS [Suspect]
     Active Substance: IBUPROFEN
     Indication: Product used for unknown indication
     Dosage: STRENGTH: 200 MG

REACTIONS (2)
  - Foreign body in throat [Unknown]
  - Product use complaint [Unknown]
